FAERS Safety Report 7667784-0 (Version None)
Quarter: 2011Q3

REPORT INFORMATION
  Report Type: 
  Country: None (occurrence: None)
  Receive Date: 20110806
  Receipt Date: 20110304
  Transmission Date: 20111222
  Serious: No
  Sender: FDA-Public Use
  Company Number: US-ABBOTT-11P-163-0709200-00

PATIENT
  Sex: Male
  Weight: 83.99 kg

DRUGS (3)
  1. ADVIL LIQUI-GELS [Concomitant]
     Indication: PRODUCT USED FOR UNKNOWN INDICATION
  2. NIASPAN [Suspect]
     Indication: HIGH DENSITY LIPOPROTEIN DECREASED
     Dosage: IN MORNING
     Dates: start: 20110101
  3. CRESTOR [Concomitant]
     Indication: PRODUCT USED FOR UNKNOWN INDICATION

REACTIONS (3)
  - HYPERSENSITIVITY [None]
  - RASH ERYTHEMATOUS [None]
  - BURNING SENSATION [None]
